FAERS Safety Report 16172349 (Version 1)
Quarter: 2019Q2

REPORT INFORMATION
  Report Type: Report from Study
  Country: GB (occurrence: GB)
  Receive Date: 20190409
  Receipt Date: 20190409
  Transmission Date: 20190711
  Serious: Yes (Death, Hospitalization)
  Sender: FDA-Public Use
  Company Number: GB-ROCHE-2292607

PATIENT
  Sex: Female

DRUGS (1)
  1. TOCILIZUMAB. [Suspect]
     Active Substance: TOCILIZUMAB
     Indication: RHEUMATOID ARTHRITIS
     Route: 065
     Dates: start: 20120314, end: 20160711

REACTIONS (3)
  - Lower respiratory tract infection [Fatal]
  - Bacterial sepsis [Fatal]
  - Spontaneous haematoma [Fatal]

NARRATIVE: CASE EVENT DATE: 20180801
